FAERS Safety Report 24407455 (Version 1)
Quarter: 2024Q4

REPORT INFORMATION
  Report Type: Report from Study
  Country: US (occurrence: US)
  Receive Date: 20241007
  Receipt Date: 20241007
  Transmission Date: 20250115
  Serious: Yes (Other)
  Sender: ALEXION PHARMACEUTICALS
  Company Number: US-AstraZeneca-2024A213076

PATIENT
  Weight: 81.6 kg

DRUGS (1)
  1. CALQUENCE [Suspect]
     Active Substance: ACALABRUTINIB
     Indication: Lymphoid leukaemia (in remission)
     Dosage: 100 MILLIGRAM, BID

REACTIONS (1)
  - Retinal oedema [Recovered/Resolved]
